FAERS Safety Report 10856523 (Version 6)
Quarter: 2015Q2

REPORT INFORMATION
  Report Type: Report from Study
  Country: CA (occurrence: CA)
  Receive Date: 20150223
  Receipt Date: 20150626
  Transmission Date: 20150821
  Serious: Yes (Hospitalization)
  Sender: FDA-Public Use
  Company Number: CA-SA-2015SA020065

PATIENT
  Age: 72 Year
  Sex: Male
  Weight: 62.7 kg

DRUGS (11)
  1. JEVTANA [Suspect]
     Active Substance: CABAZITAXEL
     Route: 042
     Dates: start: 20150107, end: 20150128
  2. ATORVASTATIN [Concomitant]
     Active Substance: ATORVASTATIN
  3. LEUPROLIDE [Concomitant]
     Active Substance: LEUPROLIDE
  4. ASA [Concomitant]
     Active Substance: ASPIRIN
  5. PREDNISONE. [Concomitant]
     Active Substance: PREDNISONE
  6. PARIET [Concomitant]
     Active Substance: RABEPRAZOLE SODIUM
     Dosage: BIDX6 WEEKS
     Route: 048
     Dates: start: 20150210
  7. PLAVIX [Concomitant]
     Active Substance: CLOPIDOGREL BISULFATE
  8. PREDNISONE. [Concomitant]
     Active Substance: PREDNISONE
     Indication: PROSTATE CANCER
     Route: 048
     Dates: start: 20141207
  9. JEVTANA [Suspect]
     Active Substance: CABAZITAXEL
     Route: 042
     Dates: start: 20141217, end: 20141217
  10. RAMIPRIL. [Concomitant]
     Active Substance: RAMIPRIL
  11. NITROGLYCERINE [Concomitant]
     Active Substance: NITROGLYCERIN
     Dosage: FORM: SPRAY

REACTIONS (1)
  - Duodenal ulcer [Recovering/Resolving]

NARRATIVE: CASE EVENT DATE: 20150214
